FAERS Safety Report 9244375 (Version 1)
Quarter: 2013Q1

REPORT INFORMATION
  Report Type: Spontaneous
  Country: US (occurrence: None)
  Receive Date: 20121128
  Receipt Date: 20121128
  Transmission Date: 20140127
  Serious: Yes (Hospitalization)
  Sender: FDA-Public Use
  Company Number: 003-084

PATIENT
  Age: 49 Year
  Sex: Male
  Weight: 90.72 kg

DRUGS (4)
  1. CROFAB [Suspect]
     Indication: SNAKE BITE
     Dates: start: 20120622
  2. LISINOPRIL [Concomitant]
  3. PERCOCET [Concomitant]
  4. DOXYCYCLINE [Concomitant]

REACTIONS (1)
  - Thrombocytopenia [None]
